FAERS Safety Report 5315957-4 (Version None)
Quarter: 2007Q2

REPORT INFORMATION
  Report Type: 
  Country: None (occurrence: None)
  Receive Date: 20070503
  Receipt Date: 20070419
  Transmission Date: 20071010
  Serious: Yes (Life-Threatening, Other)
  Sender: FDA-Public Use
  Company Number: JP-ROCHE-485118

PATIENT
  Age: 14 Year
  Sex: Male
  Weight: 60 kg

DRUGS (3)
  1. TAMIFLU [Suspect]
     Route: 048
     Dates: start: 20070223, end: 20070223
  2. TAMIFLU [Suspect]
     Route: 048
     Dates: start: 20070224, end: 20070227
  3. TAMIFLU [Suspect]
     Route: 048
     Dates: start: 20070228, end: 20070228

REACTIONS (2)
  - ABNORMAL BEHAVIOUR [None]
  - LOSS OF CONSCIOUSNESS [None]
